FAERS Safety Report 21244867 (Version 1)
Quarter: 2022Q3

REPORT INFORMATION
  Report Type: Spontaneous
  Country: US (occurrence: None)
  Receive Date: 20220822
  Receipt Date: 20220822
  Transmission Date: 20221027
  Serious: Yes (Hospitalization)
  Sender: FDA-Public Use
  Company Number: None

PATIENT
  Age: 42 Year
  Sex: Male
  Weight: 57.4 kg

DRUGS (1)
  1. COLCHICINE [Suspect]
     Active Substance: COLCHICINE
     Indication: Rectal cancer metastatic
     Dosage: FREQUENCY : TWICE A DAY;?
     Route: 048
     Dates: start: 20220714, end: 20220819

REACTIONS (5)
  - Vomiting [None]
  - Nausea [None]
  - Weight decreased [None]
  - Hydroureter [None]
  - Nephrotic syndrome [None]

NARRATIVE: CASE EVENT DATE: 20220819
